FAERS Safety Report 16744187 (Version 1)
Quarter: 2019Q3

REPORT INFORMATION
  Report Type: Spontaneous
  Country: TW (occurrence: TW)
  Receive Date: 20190827
  Receipt Date: 20190827
  Transmission Date: 20191005
  Serious: Yes (Life-Threatening, Hospitalization)
  Sender: FDA-Public Use
  Company Number: PHHY2019TW197223

PATIENT
  Age: 77 Year
  Sex: Male

DRUGS (3)
  1. EDOXABAN [Interacting]
     Active Substance: EDOXABAN TOSYLATE
     Indication: ATRIAL FIBRILLATION
     Dosage: 30 MG, QD
     Route: 065
  2. BISOPROLOL [Suspect]
     Active Substance: BISOPROLOL
     Indication: ATRIAL FIBRILLATION
     Dosage: UNK
     Route: 065
  3. AMIODARONE [Suspect]
     Active Substance: AMIODARONE
     Indication: ATRIAL FIBRILLATION
     Dosage: UNK
     Route: 065

REACTIONS (14)
  - Pericardial haemorrhage [Recovered/Resolved]
  - Acute kidney injury [Recovered/Resolved]
  - Pericardial effusion [Recovered/Resolved]
  - Drug interaction [Unknown]
  - Hepatitis acute [Recovered/Resolved]
  - Hyperhidrosis [Recovered/Resolved]
  - Haemothorax [Recovered/Resolved]
  - Drug level increased [Recovered/Resolved]
  - Tachycardia [Recovered/Resolved]
  - Respiratory distress [Recovered/Resolved]
  - Cardiac tamponade [Recovered/Resolved]
  - Hypotension [Recovered/Resolved]
  - Anaemia [Recovered/Resolved]
  - International normalised ratio increased [Recovered/Resolved]
